FAERS Safety Report 4891294-7 (Version None)
Quarter: 2006Q1

REPORT INFORMATION
  Report Type: 
  Country: None (occurrence: None)
  Receive Date: 20060123
  Receipt Date: 20060111
  Transmission Date: 20060701
  Serious: Yes (Death)
  Sender: FDA-Public Use
  Company Number: 2006-DE-00134GD

PATIENT
  Age: 24 Year
  Sex: Male

DRUGS (3)
  1. COCAINE (COCAINE) [Suspect]
  2. HEROIN (DIAMORPHINE) [Suspect]
  3. BENZODIAZEPINES (BENZODIAZEPINES DERIVATIVES) [Suspect]

REACTIONS (2)
  - BLOOD ALCOHOL INCREASED [None]
  - DRUG TOXICITY [None]
